FAERS Safety Report 5325387-7 (Version None)
Quarter: 2007Q2

REPORT INFORMATION
  Report Type: 
  Country: None (occurrence: None)
  Receive Date: 20070509
  Receipt Date: 20070429
  Transmission Date: 20071010
  Serious: Yes (Other)
  Sender: FDA-Public Use
  Company Number: 15962

PATIENT
  Age: 51 Year
  Sex: Female

DRUGS (13)
  1. EPIRUBICIN [Suspect]
     Indication: BREAST CANCER IN SITU
  2. FLUOROURACIL [Suspect]
     Indication: BREAST CANCER IN SITU
  3. TAMOXIFEN. MFR: MAYNE [Suspect]
     Indication: BREAST CANCER IN SITU
  4. CYCLOPHOSPHAMIDE [Suspect]
     Indication: BREAST CANCER IN SITU
  5. FLUDARABINE PHOSPHATE [Suspect]
  6. CYTOSINE ARABINOSIDE. MFR: NOT SPECIFIED [Suspect]
     Indication: LEUKAEMIA
  7. IDARUBICIN HCL [Suspect]
  8. DAUNORUBICIN HCL [Concomitant]
  9. CYTOSINE ARABINOSIDE [Concomitant]
  10. AMSACRINE [Concomitant]
  11. CYCLOSPORINE [Concomitant]
  12. METHOTREXATE [Concomitant]
  13. ANTITHYMOCYTE GLOBULIN [Concomitant]

REACTIONS (8)
  - ACUTE MYELOID LEUKAEMIA [None]
  - APLASIA [None]
  - APLASTIC ANAEMIA [None]
  - BACTERIAL INFECTION [None]
  - BONE MARROW FAILURE [None]
  - DEVICE RELATED INFECTION [None]
  - PANCYTOPENIA [None]
  - STEM CELL TRANSPLANT [None]
